FAERS Safety Report 9397018 (Version 1)
Quarter: 2013Q3

REPORT INFORMATION
  Report Type: Spontaneous
  Country: US (occurrence: None)
  Receive Date: 20130711
  Receipt Date: 20130711
  Transmission Date: 20140515
  Serious: Yes (Life-Threatening, Other)
  Sender: FDA-Public Use
  Company Number: None

PATIENT
  Age: 70 Year
  Sex: Male

DRUGS (1)
  1. TB SKIN TEST [Suspect]
     Indication: TUBERCULIN TEST
     Dosage: CUTANEOUS
     Dates: start: 20130709, end: 20130711

REACTIONS (2)
  - Tuberculin test false positive [None]
  - Laboratory test interference [None]
